FAERS Safety Report 8084732-2 (Version None)
Quarter: 2012Q1

REPORT INFORMATION
  Report Type: 
  Country: None (occurrence: None)
  Receive Date: 20120128
  Receipt Date: 20110325
  Transmission Date: 20120608
  Serious: No
  Sender: FDA-Public Use
  Company Number: US-ABBOTT-11P-163-0714391-00

PATIENT
  Age: 61 Year
  Sex: Female

DRUGS (9)
  1. ENTOCORT EC [Concomitant]
     Indication: CROHN'S DISEASE
  2. VITAMIN B-12 [Concomitant]
     Indication: PRODUCT USED FOR UNKNOWN INDICATION
  3. POTASSIUM CHLORIDE [Concomitant]
     Indication: MINERAL SUPPLEMENTATION
  4. ALDACTONE [Concomitant]
     Indication: FLUID RETENTION
  5. PENTASA [Concomitant]
     Indication: CROHN'S DISEASE
  6. IMURAN [Concomitant]
     Indication: CROHN'S DISEASE
  7. CREON [Concomitant]
     Indication: GASTRIC DISORDER
     Dosage: DAILY
  8. HUMIRA [Suspect]
     Indication: CROHN'S DISEASE
     Dates: start: 20110201
  9. FOLIC ACID [Concomitant]
     Indication: VITAMIN SUPPLEMENTATION

REACTIONS (1)
  - ABDOMINAL PAIN [None]
